FAERS Safety Report 7014631-6 (Version None)
Quarter: 2010Q3

REPORT INFORMATION
  Report Type: 
  Country: None (occurrence: None)
  Receive Date: 20100927
  Receipt Date: 20100921
  Transmission Date: 20110219
  Serious: Yes (Death)
  Sender: FDA-Public Use
  Company Number: US-CELGENEUS-163-21880-10072291

PATIENT
  Sex: Female

DRUGS (5)
  1. REVLIMID [Suspect]
     Route: 048
     Dates: start: 20090701, end: 20100701
  2. REVLIMID [Suspect]
     Indication: MULTIPLE MYELOMA
  3. PROCRIT [Concomitant]
     Route: 058
  4. NEUPOGEN [Concomitant]
     Route: 058
  5. TRANSFUSIONS [Concomitant]
     Route: 051

REACTIONS (2)
  - MULTIPLE MYELOMA [None]
  - SEPSIS [None]
